FAERS Safety Report 25847319 (Version 1)
Quarter: 2025Q3

REPORT INFORMATION
  Report Type: Spontaneous
  Country: US (occurrence: US)
  Receive Date: 20250925
  Receipt Date: 20250925
  Transmission Date: 20251021
  Serious: No
  Sender: LAVIPHARM
  Company Number: US-Lavipharm SA-2185283

PATIENT
  Age: 51 Year
  Sex: Female

DRUGS (1)
  1. CLONIDINE TRANSDERMAL SYSTEM USP, 0.2 MG/DAY [Suspect]
     Active Substance: CLONIDINE
     Indication: Blood pressure abnormal

REACTIONS (4)
  - Product adhesion issue [Unknown]
  - Disease recurrence [Unknown]
  - Application site pruritus [Unknown]
  - Product dose omission in error [Unknown]
